FAERS Safety Report 7345723-X (Version None)
Quarter: 2011Q1

REPORT INFORMATION
  Report Type: 
  Country: None (occurrence: None)
  Receive Date: 20110310
  Receipt Date: 20110228
  Transmission Date: 20110831
  Serious: Yes (Other)
  Sender: FDA-Public Use
  Company Number: US-MYLANLABS-2011S1004020

PATIENT
  Age: 61 Year
  Sex: Female
  Weight: 82.01 kg

DRUGS (3)
  1. AMITRIPTYLINE HCL [Suspect]
     Indication: INSOMNIA
  2. LEXAPRO [Concomitant]
     Indication: DEPRESSION
  3. CHANTIX [Suspect]
     Indication: SMOKING CESSATION THERAPY
     Dates: start: 20100101

REACTIONS (13)
  - CONSTIPATION [None]
  - ANXIETY [None]
  - COUGH [None]
  - PANIC ATTACK [None]
  - WEIGHT INCREASED [None]
  - BRONCHITIS [None]
  - ABDOMINAL DISCOMFORT [None]
  - ANGER [None]
  - DRUG INEFFECTIVE FOR UNAPPROVED INDICATION [None]
  - DYSPEPSIA [None]
  - INSOMNIA [None]
  - VOMITING [None]
  - MALAISE [None]
